FAERS Safety Report 5683525-0 (Version None)
Quarter: 2008Q1

REPORT INFORMATION
  Report Type: 
  Country: None (occurrence: None)
  Receive Date: 20080326
  Receipt Date: 20080311
  Transmission Date: 20080703
  Serious: Yes (Other)
  Sender: FDA-Public Use
  Company Number: SPV1-2008-00516

PATIENT
  Sex: Female

DRUGS (2)
  1. PENLASA(MESALAZINE,MESALAMINE) CAPSULE [Suspect]
     Dates: start: 20070101
  2. ANTIFUNGALS() [Suspect]

REACTIONS (2)
  - ALANINE AMINOTRANSFERASE INCREASED [None]
  - HEPATIC STEATOSIS [None]
